FAERS Safety Report 20735406 (Version 1)
Quarter: 2022Q2

REPORT INFORMATION
  Report Type: Spontaneous
  Country: US (occurrence: None)
  Receive Date: 20220420
  Receipt Date: 20220420
  Transmission Date: 20220721
  Serious: Yes (Other)
  Sender: FDA-Public Use
  Company Number: None

PATIENT
  Age: 41 Year
  Sex: Female
  Weight: 63.5 kg

DRUGS (1)
  1. GABAPENTIN [Suspect]
     Active Substance: GABAPENTIN
     Indication: Multiple sclerosis
     Dosage: FREQUENCY : DAILY;?
     Route: 048
     Dates: start: 2011

REACTIONS (5)
  - Erythema [None]
  - Skin burning sensation [None]
  - Skin irritation [None]
  - Nausea [None]
  - Diarrhoea [None]

NARRATIVE: CASE EVENT DATE: 20110101
